FAERS Safety Report 8219650-X (Version None)
Quarter: 2012Q1

REPORT INFORMATION
  Report Type: 
  Country: None (occurrence: None)
  Receive Date: 20120319
  Receipt Date: 20120310
  Transmission Date: 20120608
  Serious: Yes (Death, Life-Threatening)
  Sender: FDA-Public Use
  Company Number: RO-UCBSA-050796

PATIENT
  Age: 79 Year
  Sex: Female
  Weight: 48 kg

DRUGS (13)
  1. NEUPRO [Suspect]
     Route: 062
     Dates: start: 20101016, end: 20101022
  2. NEUPRO [Suspect]
     Route: 062
     Dates: start: 20110728, end: 20110828
  3. MADOPAR [Concomitant]
     Dosage: 100/25 MG
     Dates: start: 20100727, end: 20111012
  4. RAMIPRIL [Concomitant]
     Indication: HYPERTENSION
     Dates: start: 20080101, end: 20111012
  5. NEUPRO [Suspect]
     Route: 062
     Dates: start: 20101106, end: 20110727
  6. NEUPRO [Suspect]
     Route: 062
     Dates: start: 20101023, end: 20101029
  7. MADOPAR [Concomitant]
     Indication: PARKINSON'S DISEASE
     Dosage: 100/25 MG
     Dates: start: 20081001, end: 20100726
  8. METOPROLOL SUCCINATE [Concomitant]
     Indication: MYOCARDIAL ISCHAEMIA
     Dates: start: 20080101, end: 20111012
  9. CLOZAPINE [Concomitant]
     Indication: HALLUCINATION, VISUAL
     Dates: start: 20111006, end: 20111012
  10. NEUPRO [Suspect]
     Indication: PARKINSON'S DISEASE
     Route: 062
     Dates: start: 20110829, end: 20111012
  11. NEUPRO [Suspect]
     Route: 062
     Dates: start: 20101030, end: 20101105
  12. VIREGYT [Concomitant]
     Indication: PARKINSON'S DISEASE
     Dates: start: 20081001, end: 20111012
  13. ASPIRINA CARDIO [Concomitant]
     Indication: MYOCARDIAL ISCHAEMIA
     Dates: start: 20080101, end: 20111012

REACTIONS (3)
  - DEHYDRATION [None]
  - CARDIO-RESPIRATORY ARREST [None]
  - STARVATION [None]
